FAERS Safety Report 12603491 (Version 2)
Quarter: 2016Q4

REPORT INFORMATION
  Report Type: Report from Study
  Country: FR (occurrence: FR)
  Receive Date: 20160728
  Receipt Date: 20161215
  Transmission Date: 20170207
  Serious: Yes (Death, Other)
  Sender: FDA-Public Use
  Company Number: FR-CELGENEUS-FRA-2016074546

PATIENT

DRUGS (3)
  1. AZACITIDINE INJECTABLE [Suspect]
     Active Substance: AZACITIDINE
     Indication: PRODUCT USED FOR UNKNOWN INDICATION
     Dosage: 32 MILLIGRAM/SQ .MTR
     Route: 058
  2. DLI [Concomitant]
     Active Substance: LYMPHOCYTES
     Indication: PRODUCT USED FOR UNKNOWN INDICATION
     Route: 065
  3. AZACITIDINE INJECTABLE [Suspect]
     Active Substance: AZACITIDINE
     Dosage: 16 MG/SQ MTR FOR ONLY 2 CYCLES
     Route: 058

REACTIONS (5)
  - Acute graft versus host disease [Unknown]
  - Chronic graft versus host disease [Unknown]
  - Disease recurrence [Fatal]
  - Infection [Fatal]
  - Cardiac failure [Fatal]
